FAERS Safety Report 5121305-5 (Version None)
Quarter: 2006Q4

REPORT INFORMATION
  Report Type: 
  Country: None (occurrence: None)
  Receive Date: 20061002
  Receipt Date: 20060919
  Transmission Date: 20070319
  Serious: Yes (Other)
  Sender: FDA-Public Use
  Company Number: 2006087881

PATIENT
  Age: 66 Year
  Sex: Female
  Weight: 84.369 kg

DRUGS (1)
  1. SUTENT [Suspect]
     Indication: GASTROINTESTINAL STROMAL TUMOUR
     Dosage: 50 MG (DAILY FOR 4 WEEKS ON, 2 WEEKS OFF), ORAL
     Route: 048
     Dates: start: 20060601, end: 20060731

REACTIONS (10)
  - BLOOD GLUCOSE INCREASED [None]
  - BLOOD PRESSURE SYSTOLIC INCREASED [None]
  - BLOOD UREA NITROGEN/CREATININE RATIO DECREASED [None]
  - EYE IRRITATION [None]
  - GLOMERULAR FILTRATION RATE DECREASED [None]
  - ORAL DISCOMFORT [None]
  - ORAL MUCOSAL BLISTERING [None]
  - RASH MACULAR [None]
  - VAGINAL BURNING SENSATION [None]
  - WEIGHT DECREASED [None]
